FAERS Safety Report 18261700 (Version 1)
Quarter: 2020Q3

REPORT INFORMATION
  Report Type: Spontaneous
  Country: US (occurrence: US)
  Receive Date: 20200912
  Receipt Date: 20200912
  Transmission Date: 20201103
  Serious: Yes (Disabling, Other)
  Sender: FDA-Public Use
  Company Number: None

PATIENT
  Age: 41 Year
  Sex: Male
  Weight: 87.75 kg

DRUGS (5)
  1. EMGALITY [Suspect]
     Active Substance: GALCANEZUMAB-GNLM
     Indication: MIGRAINE
     Dosage: ?          QUANTITY:120 INJECTION(S);OTHER FREQUENCY:1 PER MONTH;?
     Route: 058
     Dates: start: 20200504, end: 20200905
  2. MODAFINIL. [Concomitant]
     Active Substance: MODAFINIL
  3. METOPROLOL. [Concomitant]
     Active Substance: METOPROLOL
  4. CELEXA [Concomitant]
     Active Substance: CITALOPRAM HYDROBROMIDE
  5. ONCE A DAY VITAMIN [Concomitant]

REACTIONS (4)
  - Condition aggravated [None]
  - Gastrooesophageal reflux disease [None]
  - Heart rate increased [None]
  - Vertigo [None]

NARRATIVE: CASE EVENT DATE: 20200905
